FAERS Safety Report 13698496 (Version 1)
Quarter: 2017Q2

REPORT INFORMATION
  Report Type: Spontaneous
  Country: DE (occurrence: DE)
  Receive Date: 20170628
  Receipt Date: 20170628
  Transmission Date: 20170830
  Serious: Yes (Hospitalization)
  Sender: FDA-Public Use
  Company Number: GXKR2017DE003438

PATIENT
  Age: 80 Year
  Sex: Male

DRUGS (2)
  1. CIPROFLOXACINA [Suspect]
     Active Substance: CIPROFLOXACIN
     Indication: PANCREATITIS
     Dosage: 1 DF, BID
     Route: 041
  2. CIPROFLOXACINA [Suspect]
     Active Substance: CIPROFLOXACIN
     Indication: PYREXIA

REACTIONS (2)
  - Confusional state [Not Recovered/Not Resolved]
  - Disorientation [Not Recovered/Not Resolved]
